FAERS Safety Report 21596910 (Version 7)
Quarter: 2023Q2

REPORT INFORMATION
  Report Type: Report from Study
  Country: US (occurrence: US)
  Receive Date: 20221115
  Receipt Date: 20230428
  Transmission Date: 20230721
  Serious: No
  Sender: FDA-Public Use
  Company Number: US-002147023-NVSC2022US253531

PATIENT
  Age: 71 Year
  Sex: Female
  Weight: 62.5 kg

DRUGS (2)
  1. COSENTYX [Suspect]
     Active Substance: SECUKINUMAB
     Indication: Psoriasis
     Dosage: 150 MG, QW
     Route: 058
     Dates: start: 20221011
  2. COSENTYX [Suspect]
     Active Substance: SECUKINUMAB
     Dosage: 300 MG, QMO
     Route: 058

REACTIONS (7)
  - Nausea [Unknown]
  - Headache [Unknown]
  - Pain [Unknown]
  - Pruritus [Unknown]
  - Pruritus [Recovered/Resolved]
  - Psoriasis [Unknown]
  - Product availability issue [Unknown]

NARRATIVE: CASE EVENT DATE: 20221213
